FAERS Safety Report 5586896-9 (Version None)
Quarter: 2008Q1

REPORT INFORMATION
  Report Type: 
  Country: None (occurrence: None)
  Receive Date: 20080108
  Receipt Date: 20080108
  Transmission Date: 20080703
  Serious: Yes (Other)
  Sender: FDA-Public Use
  Company Number: None

PATIENT
  Age: 85 Year
  Sex: Female
  Weight: 77.1115 kg

DRUGS (1)
  1. PHOSLO [Suspect]
     Indication: RENAL FAILURE
     Dates: start: 20071109, end: 20071231

REACTIONS (6)
  - ASTHENIA [None]
  - FATIGUE [None]
  - MOOD ALTERED [None]
  - NAUSEA [None]
  - THIRST [None]
  - VOMITING [None]
